FAERS Safety Report 17782988 (Version 3)
Quarter: 2020Q3

REPORT INFORMATION
  Report Type: Report from Study
  Country: CA (occurrence: CA)
  Receive Date: 20200514
  Receipt Date: 20200822
  Transmission Date: 20201102
  Serious: Yes (Other)
  Sender: FDA-Public Use
  Company Number: PHHY2018CA163365

PATIENT
  Sex: Female

DRUGS (2)
  1. ERELZI [Suspect]
     Active Substance: ETANERCEPT-SZZS
     Dosage: 50 MG, QW
     Route: 058
     Dates: start: 2018
  2. ERELZI [Suspect]
     Active Substance: ETANERCEPT-SZZS
     Indication: ANKYLOSING SPONDYLITIS
     Dosage: 50 MG, QW
     Route: 058
     Dates: start: 20181106

REACTIONS (15)
  - Blood pressure decreased [Unknown]
  - Eating disorder [Unknown]
  - Stress [Unknown]
  - Weight decreased [Unknown]
  - Arthritis [Unknown]
  - Product dose omission issue [Unknown]
  - Ankylosing spondylitis [Unknown]
  - Arthralgia [Unknown]
  - Palpitations [Unknown]
  - Cough [Unknown]
  - Injection site inflammation [Unknown]
  - Influenza [Recovering/Resolving]
  - Bronchitis [Unknown]
  - Sputum discoloured [Unknown]
  - Vomiting [Unknown]

NARRATIVE: CASE EVENT DATE: 2019
